FAERS Safety Report 8282460-1 (Version None)
Quarter: 2012Q2

REPORT INFORMATION
  Report Type: 
  Country: None (occurrence: None)
  Receive Date: 20120411
  Receipt Date: 20120327
  Transmission Date: 20120825
  Serious: Yes (Other)
  Sender: FDA-Public Use
  Company Number: US-1191319

PATIENT
  Sex: Female

DRUGS (2)
  1. DUREZOL [Concomitant]
  2. NEVANAC [Suspect]
     Indication: PAROPHTHALMIA
     Dosage: (OPHTHALMIC)
     Route: 047

REACTIONS (1)
  - ULCERATIVE KERATITIS [None]
